FAERS Safety Report 7621405-1 (Version None)
Quarter: 2011Q3

REPORT INFORMATION
  Report Type: 
  Country: None (occurrence: None)
  Receive Date: 20110719
  Receipt Date: 20110708
  Transmission Date: 20111222
  Serious: Yes (Hospitalization, Other)
  Sender: FDA-Public Use
  Company Number: US-ELI_LILLY_AND_COMPANY-US201103000273

PATIENT
  Sex: Female

DRUGS (15)
  1. FORTEO [Suspect]
     Dosage: 20 UG, QD
  2. POTASSIUM CHLORIDE [Concomitant]
  3. MAGNESIUM [Concomitant]
  4. QUINAPRIL HCL [Concomitant]
     Dosage: 40 MG, QD
  5. INDAPAMIDE [Concomitant]
     Dosage: 1.25 MG, QD
  6. LIPITOR [Concomitant]
     Dosage: 20 UG, QD
  7. PREDNISONE [Concomitant]
  8. TYLENOL PM EXTRA STRENGTH [Concomitant]
  9. ATENOLOL [Concomitant]
     Dosage: 50 MG, QD
  10. FISH OIL [Concomitant]
     Dosage: 1000 MG, TID
  11. HYDROCODONE [Concomitant]
  12. CALCIUM D [Concomitant]
     Dosage: 600 MG, BID
  13. FORTEO [Suspect]
     Indication: OSTEOPOROSIS
     Dosage: 20 UG, DAILY (1/D)
     Route: 065
     Dates: start: 20100201
  14. ASCORBIC ACID [Concomitant]
     Dosage: UNK, BID
  15. PRADAXA [Concomitant]
     Dosage: 150 MG, UNK

REACTIONS (1)
  - ARTHROPATHY [None]
